FAERS Safety Report 10204780 (Version 1)
Quarter: 2014Q2

REPORT INFORMATION
  Report Type: Spontaneous
  Country: CN (occurrence: CN)
  Receive Date: 20140529
  Receipt Date: 20140529
  Transmission Date: 20141212
  Serious: Yes (Hospitalization)
  Sender: FDA-Public Use
  Company Number: CN-ELI_LILLY_AND_COMPANY-CN201405006720

PATIENT
  Age: 82 Year
  Sex: Male

DRUGS (1)
  1. TERIPARATIDE [Suspect]
     Indication: OSTEOPOROSIS
     Dosage: 20 UG, QD
     Route: 058
     Dates: start: 20130523, end: 20130614

REACTIONS (3)
  - Fracture pain [Recovering/Resolving]
  - Constipation [Recovering/Resolving]
  - Off label use [Unknown]
